FAERS Safety Report 17201461 (Version 1)
Quarter: 2019Q4

REPORT INFORMATION
  Report Type: Spontaneous
  Country: US (occurrence: US)
  Receive Date: 20191219
  Receipt Date: 20191219
  Transmission Date: 20200122
  Serious: No
  Sender: FDA-Public Use
  Company Number: None

PATIENT
  Age: 59 Year
  Sex: Female
  Weight: 63.9 kg

DRUGS (6)
  1. NORCO [Concomitant]
     Active Substance: ACETAMINOPHEN\HYDROCODONE BITARTRATE
  2. MULTI VITAMIN [Concomitant]
     Active Substance: VITAMINS
  3. CTFO 10X PURE CBD GOLD 1000 [Suspect]
     Active Substance: CANNABIDIOL\CANNABIS SATIVA SEED OIL
     Indication: PAIN
     Dosage: ?          QUANTITY:20 DROP(S);?
     Route: 048
     Dates: start: 20190911, end: 20191202
  4. MAGNESIUM [Concomitant]
     Active Substance: MAGNESIUM
  5. CLONAZEPAM. [Concomitant]
     Active Substance: CLONAZEPAM
  6. NANO-SILVER [Concomitant]

REACTIONS (1)
  - Product substitution issue [None]
